FAERS Safety Report 20668588 (Version 2)
Quarter: 2022Q2

REPORT INFORMATION
  Report Type: Report from Study
  Country: ES (occurrence: None)
  Receive Date: 20220404
  Receipt Date: 20220415
  Transmission Date: 20220721
  Serious: Yes (Hospitalization)
  Sender: FDA-Public Use
  Company Number: ES-ROCHE-3060267

PATIENT
  Age: 72 Year
  Sex: Female
  Weight: 44.1 kg

DRUGS (12)
  1. ATEZOLIZUMAB [Suspect]
     Active Substance: ATEZOLIZUMAB
     Indication: Ovarian cancer recurrent
     Dosage: DATE OF LAST DOSE PRIOR TO SAE: 31/DEC/2021
     Route: 042
     Dates: start: 20211203, end: 20211231
  2. BEVACIZUMAB [Suspect]
     Active Substance: BEVACIZUMAB
     Indication: Ovarian cancer recurrent
     Dosage: DATE OF LAST DOSE PRIOR TO SAE: 11/MAR/2022
     Route: 042
     Dates: start: 20211203, end: 20220311
  3. PACLITAXEL [Suspect]
     Active Substance: PACLITAXEL
     Indication: Ovarian cancer recurrent
     Dosage: DATE OF LAST DOSE PRIOR TO SAE:18/MAR/2022
     Route: 042
     Dates: start: 20211203, end: 20220318
  4. LOPERAMIDE HYDROCHLORIDE [Concomitant]
     Active Substance: LOPERAMIDE HYDROCHLORIDE
     Indication: Colitis
     Route: 048
     Dates: start: 20220224
  5. HYDROCHLOROTHIAZIDE\LOSARTAN [Concomitant]
     Active Substance: HYDROCHLOROTHIAZIDE\LOSARTAN
     Indication: Hypertension
     Dosage: 50 MG/ 125 MG
     Route: 048
  6. CALCIUM CARBONATE\CHOLECALCIFEROL [Concomitant]
     Active Substance: CALCIUM CARBONATE\CHOLECALCIFEROL
     Route: 048
  7. CALCIUM [Concomitant]
     Active Substance: CALCIUM
     Route: 048
  8. FENTANYL [Concomitant]
     Active Substance: FENTANYL
     Dosage: 12 MCG
     Route: 062
  9. ACETAMINOPHEN [Concomitant]
     Active Substance: ACETAMINOPHEN
     Route: 048
  10. DEXKETOPROFEN TROMETAMOL [Concomitant]
     Active Substance: DEXKETOPROFEN TROMETAMOL
     Route: 048
  11. IRON [Concomitant]
     Active Substance: IRON
     Route: 048
  12. PREDNISONE [Concomitant]
     Active Substance: PREDNISONE
     Indication: Colitis
     Route: 048
     Dates: start: 20220113

REACTIONS (1)
  - Asthenia [Recovered/Resolved]

NARRATIVE: CASE EVENT DATE: 20220322
